FAERS Safety Report 4481347-X (Version None)
Quarter: 2004Q4

REPORT INFORMATION
  Report Type: 
  Country: None (occurrence: None)
  Receive Date: 20041021
  Receipt Date: 20040810
  Transmission Date: 20050328
  Serious: Yes (Hospitalization)
  Sender: FDA-Public Use
  Company Number: FR-GLAXOSMITHKLINE-B0342076A

PATIENT
  Age: 50 Year
  Sex: Female

DRUGS (6)
  1. AZANTAC [Suspect]
     Indication: ILL-DEFINED DISORDER
     Dosage: 1UNIT PER DAY
     Route: 042
     Dates: start: 20030513, end: 20030513
  2. ZOPHREN [Suspect]
     Indication: ILL-DEFINED DISORDER
     Dosage: 1UNIT PER DAY
     Route: 042
     Dates: start: 20030513, end: 20030513
  3. POLARAMINE [Suspect]
     Indication: PREMEDICATION
     Dosage: 1UNIT PER DAY
     Route: 042
     Dates: start: 20030513, end: 20030513
  4. SOLU-MEDROL [Suspect]
     Indication: ILL-DEFINED DISORDER
     Route: 042
     Dates: start: 20030513, end: 20030513
  5. CISPLATIN [Suspect]
     Indication: METASTATIC NEOPLASM
     Dosage: 160MG PER DAY
     Route: 042
     Dates: start: 20030513, end: 20030513
  6. TAXOL [Suspect]
     Indication: METASTATIC NEOPLASM
     Dosage: 250MG PER DAY
     Route: 042
     Dates: start: 20030513, end: 20030513

REACTIONS (4)
  - AREFLEXIA [None]
  - DEAFNESS [None]
  - PARAESTHESIA [None]
  - POLYNEUROPATHY [None]
